FAERS Safety Report 7364512-3 (Version None)
Quarter: 2011Q1

REPORT INFORMATION
  Report Type: 
  Country: None (occurrence: None)
  Receive Date: 20110321
  Receipt Date: 20110311
  Transmission Date: 20110831
  Serious: Yes (Hospitalization, Other)
  Sender: FDA-Public Use
  Company Number: US-MERCK-1011USA03033

PATIENT
  Age: 70 Year
  Sex: Male

DRUGS (6)
  1. WARFARIN [Concomitant]
     Route: 065
  2. LITHIUM [Suspect]
     Route: 065
  3. ZOCOR [Suspect]
     Indication: HYPERLIPIDAEMIA
     Route: 048
     Dates: start: 19960101, end: 20110101
  4. DEPAKOTE [Concomitant]
     Route: 065
  5. FLOMAX [Concomitant]
     Route: 065
  6. SINEMET [Suspect]
     Route: 048

REACTIONS (9)
  - PAIN [None]
  - ARTHRITIS [None]
  - NEUROPATHY PERIPHERAL [None]
  - JOINT SWELLING [None]
  - HEMIPLEGIA [None]
  - TOXICITY TO VARIOUS AGENTS [None]
  - PARKINSON'S DISEASE [None]
  - TREMOR [None]
  - PARKINSONISM [None]
